FAERS Safety Report 9679555 (Version 2)
Quarter: 2014Q1

REPORT INFORMATION
  Report Type: Spontaneous
  Country: US (occurrence: US)
  Receive Date: 20131109
  Receipt Date: 20140201
  Transmission Date: 20141002
  Serious: No
  Sender: FDA-Public Use
  Company Number: US-B.I. PHARMACEUTICALS,INC./RIDGEFIELD-2013-BI-34767BP

PATIENT
  Age: 84 Year
  Sex: Female

DRUGS (1)
  1. COMBIVENT [Suspect]
     Indication: ASTHMA
     Dosage: STRENGTH: 20 MCG / 100 MCG;
     Route: 055
     Dates: start: 201305, end: 201307

REACTIONS (3)
  - Dyspnoea [Recovered/Resolved]
  - Off label use [Recovered/Resolved]
  - Product quality issue [Recovered/Resolved]
